FAERS Safety Report 24840436 (Version 1)
Quarter: 2025Q1

REPORT INFORMATION
  Report Type: Spontaneous
  Country: US (occurrence: None)
  Receive Date: 20250113
  Receipt Date: 20250113
  Transmission Date: 20250408
  Serious: Yes (Disabling)
  Sender: FDA-CTU
  Company Number: None

PATIENT
  Age: 31 Year
  Sex: Male
  Weight: 81 kg

DRUGS (1)
  1. SAPHRIS [Suspect]
     Active Substance: ASENAPINE MALEATE
     Indication: Bipolar disorder
     Dates: start: 20180606, end: 20200414

REACTIONS (7)
  - Impaired quality of life [None]
  - Anhedonia [None]
  - Sleep disorder [None]
  - Apathy [None]
  - Asthenia [None]
  - Libido decreased [None]
  - Feeling abnormal [None]

NARRATIVE: CASE EVENT DATE: 20181201
